FAERS Safety Report 6196817-6 (Version None)
Quarter: 2009Q2

REPORT INFORMATION
  Report Type: 
  Country: None (occurrence: None)
  Receive Date: 20090520
  Receipt Date: 20090511
  Transmission Date: 20091009
  Serious: Yes (Other)
  Sender: FDA-Public Use
  Company Number: FR-AVENTIS-200911853FR

PATIENT
  Sex: Female

DRUGS (5)
  1. TAXOTERE [Suspect]
     Route: 042
  2. FLUOROURACIL [Suspect]
     Route: 042
  3. EPIRUBICIN [Suspect]
     Route: 042
  4. CYCLOPHOSPHAMIDE [Suspect]
     Route: 042
  5. UNKNOWN DRUG [Concomitant]

REACTIONS (1)
  - SHOCK [None]
